FAERS Safety Report 7368031-X (Version None)
Quarter: 2011Q1

REPORT INFORMATION
  Report Type: 
  Country: None (occurrence: None)
  Receive Date: 20110323
  Receipt Date: 20110314
  Transmission Date: 20110831
  Serious: Yes (Other)
  Sender: FDA-Public Use
  Company Number: US-BRISTOL-MYERS SQUIBB COMPANY-15605892

PATIENT
  Age: 57 Year
  Sex: Male

DRUGS (4)
  1. SIMVASTATIN [Concomitant]
  2. ASPIRIN [Concomitant]
  3. AVALIDE [Suspect]
  4. METOPROLOL [Concomitant]

REACTIONS (2)
  - CARDIAC DISORDER [None]
  - DIZZINESS [None]
